FAERS Safety Report 23171777 (Version 2)
Quarter: 2023Q4

REPORT INFORMATION
  Report Type: Spontaneous
  Country: CN (occurrence: CN)
  Receive Date: 20231110
  Receipt Date: 20231113
  Transmission Date: 20240110
  Serious: Yes (Hospitalization)
  Sender: FDA-Public Use
  Company Number: CN-BoehringerIngelheim-2023-BI-270701

PATIENT
  Age: 67 Year
  Sex: Male

DRUGS (5)
  1. OFEV [Suspect]
     Active Substance: NINTEDANIB
     Indication: Fibrosis
     Route: 048
     Dates: start: 20231018, end: 20231020
  2. CEFOPERAZONE SODIUM [Concomitant]
     Active Substance: CEFOPERAZONE SODIUM
     Indication: Product used for unknown indication
  3. SULBACTAM SODIUM [Concomitant]
     Active Substance: SULBACTAM SODIUM
     Indication: Product used for unknown indication
  4. GANCICLOVIR [Concomitant]
     Active Substance: GANCICLOVIR
     Indication: Product used for unknown indication
  5. FLUCONAZOLE [Concomitant]
     Active Substance: FLUCONAZOLE
     Indication: Product used for unknown indication

REACTIONS (1)
  - Drug eruption [Not Recovered/Not Resolved]

NARRATIVE: CASE EVENT DATE: 20231023
